FAERS Safety Report 21580879 (Version 2)
Quarter: 2022Q4

REPORT INFORMATION
  Report Type: Report from Study
  Country: UY (occurrence: UY)
  Receive Date: 20221111
  Receipt Date: 20221111
  Transmission Date: 20230112
  Serious: Yes (Hospitalization, Other)
  Sender: FDA-Public Use
  Company Number: UY-ABBVIE-4162494

PATIENT
  Age: 44 Year
  Sex: Female

DRUGS (1)
  1. HUMIRA [Suspect]
     Active Substance: ADALIMUMAB
     Indication: Uveitis
     Dosage: FORM STRENGTH: 40 MILLIGRAM
     Route: 058
     Dates: start: 20171109

REACTIONS (1)
  - Uterine polyp [Recovered/Resolved]

NARRATIVE: CASE EVENT DATE: 20221001
